FAERS Safety Report 8427479-2 (Version None)
Quarter: 2012Q2

REPORT INFORMATION
  Report Type: 
  Country: None (occurrence: None)
  Receive Date: 20120611
  Receipt Date: 20120531
  Transmission Date: 20120825
  Serious: Yes (Other)
  Sender: FDA-Public Use
  Company Number: GB-ELI_LILLY_AND_COMPANY-GB201206000103

PATIENT
  Age: 67 Year
  Sex: Female

DRUGS (2)
  1. PEMETREXED [Suspect]
     Indication: LUNG NEOPLASM MALIGNANT
     Dosage: UNK
  2. CARBOPLATIN [Concomitant]
     Indication: LUNG NEOPLASM MALIGNANT

REACTIONS (2)
  - RENAL DISORDER [None]
  - EYE IRRITATION [None]
